FAERS Safety Report 5954086-3 (Version None)
Quarter: 2008Q4

REPORT INFORMATION
  Report Type: 
  Country: None (occurrence: None)
  Receive Date: 20081114
  Receipt Date: 20081105
  Transmission Date: 20090506
  Serious: Yes (Disabling, Other)
  Sender: FDA-Public Use
  Company Number: US-MERCK-0708USA05384

PATIENT
  Age: 78 Year
  Sex: Female
  Weight: 73 kg

DRUGS (5)
  1. FOSAMAX [Suspect]
     Indication: OSTEOPOROSIS PROPHYLAXIS
     Route: 048
     Dates: start: 20010101, end: 20060101
  2. [THERAPY UNSPECIFIED] [Concomitant]
     Indication: BLOOD CHOLESTEROL INCREASED
     Route: 065
     Dates: start: 19800101
  3. [THERAPY UNSPECIFIED] [Concomitant]
     Route: 065
     Dates: start: 19800101
  4. ALLOPURINOL [Concomitant]
     Indication: GOUT
     Route: 065
     Dates: start: 20010101
  5. DETROL LA [Concomitant]
     Indication: HYPERTONIC BLADDER
     Route: 065
     Dates: start: 20000101

REACTIONS (23)
  - ACCELERATED HYPERTENSION [None]
  - ASTHMA [None]
  - BONE FRAGMENTATION [None]
  - BRONCHITIS [None]
  - CATARACT [None]
  - CHRONIC OBSTRUCTIVE PULMONARY DISEASE [None]
  - CONJUNCTIVITIS [None]
  - DENTAL CARIES [None]
  - DERMATITIS [None]
  - EXOSTOSIS [None]
  - GASTRIC PH DECREASED [None]
  - GINGIVAL INFECTION [None]
  - IMPAIRED HEALING [None]
  - JAW DISORDER [None]
  - LOWER LIMB FRACTURE [None]
  - OEDEMA PERIPHERAL [None]
  - ORAL INFECTION [None]
  - ORAL PAIN [None]
  - RHEUMATOID ARTHRITIS [None]
  - STRESS [None]
  - SWELLING [None]
  - TOOTH DISORDER [None]
  - VULVOVAGINAL MYCOTIC INFECTION [None]
